FAERS Safety Report 25525623 (Version 1)
Quarter: 2025Q3

REPORT INFORMATION
  Report Type: Spontaneous
  Country: ZA (occurrence: ZA)
  Receive Date: 20250707
  Receipt Date: 20250707
  Transmission Date: 20251020
  Serious: Yes (Other)
  Sender: PFIZER
  Company Number: ZA-PFIZER INC-PV202500079231

PATIENT
  Sex: Female
  Weight: 82 kg

DRUGS (3)
  1. METHOTREXATE SODIUM [Suspect]
     Active Substance: METHOTREXATE SODIUM
     Dosage: 20 MG, WEEKLY
     Dates: start: 1989, end: 2000
  2. CHLOROQUINE SULFATE [Concomitant]
     Active Substance: CHLOROQUINE SULFATE
     Dosage: 200 MG, DAILY
     Dates: start: 1989, end: 2005
  3. SULFASALAZINE [Concomitant]
     Active Substance: SULFASALAZINE
     Dosage: 500 MG, 2X/DAY
     Dates: start: 1989, end: 2000

REACTIONS (3)
  - Chronic kidney disease [Unknown]
  - Hypertension [Unknown]
  - Asthma [Unknown]

NARRATIVE: CASE EVENT DATE: 19950101
